FAERS Safety Report 5326352-6 (Version None)
Quarter: 2007Q2

REPORT INFORMATION
  Report Type: 
  Country: None (occurrence: None)
  Receive Date: 20070516
  Receipt Date: 20070509
  Transmission Date: 20071010
  Serious: Yes (Hospitalization)
  Sender: FDA-Public Use
  Company Number: B0397209A

PATIENT
  Age: 63 Year
  Sex: Male
  Weight: 68 kg

DRUGS (1)
  1. DUTASTERIDE [Suspect]
     Indication: NEOPLASM PROPHYLAXIS
     Dosage: .5MG PER DAY
     Route: 048
     Dates: start: 20031127

REACTIONS (3)
  - CHEST PAIN [None]
  - DYSPNOEA [None]
  - LUNG CANCER METASTATIC [None]
